FAERS Safety Report 4572231-1 (Version None)
Quarter: 2005Q1

REPORT INFORMATION
  Report Type: 
  Country: None (occurrence: None)
  Receive Date: 20050203
  Receipt Date: 20050120
  Transmission Date: 20050727
  Serious: No
  Sender: FDA-Public Use
  Company Number: 9886

PATIENT
  Age: 7 Year
  Sex: Male

DRUGS (8)
  1. METHOTREXATE [Suspect]
     Indication: JUVENILE ARTHRITIS
     Dosage: 15 MG WEEKLY, SC
     Route: 058
     Dates: start: 19980701
  2. IBUPROFEN [Suspect]
     Indication: JUVENILE ARTHRITIS
     Dosage: 10 MG WEEKLY, PO
     Route: 048
     Dates: start: 19980201
  3. ETANERCEPT [Suspect]
     Indication: JUVENILE ARTHRITIS
     Dosage: 100 G, 7.5 MG 2/WK, SC
     Route: 058
     Dates: start: 20010601
  4. SODIUM FEREDETATE [Concomitant]
  5. FOLIC ACID [Concomitant]
  6. OMEPRAZOLE [Concomitant]
  7. CALCIUM GLUBIONATE [Concomitant]
  8. CALCITRIOL [Concomitant]

REACTIONS (4)
  - HYPERSENSITIVITY [None]
  - PHARMACEUTICAL PRODUCT COMPLAINT [None]
  - PRURITUS [None]
  - URTICARIA [None]
